FAERS Safety Report 23871856 (Version 1)
Quarter: 2024Q2

REPORT INFORMATION
  Report Type: Spontaneous
  Country: US (occurrence: US)
  Receive Date: 20240520
  Receipt Date: 20240520
  Transmission Date: 20240716
  Serious: No
  Sender: FDA-Public Use
  Company Number: US-SANOFI-02043839

PATIENT
  Age: 39 Year
  Sex: Female

DRUGS (2)
  1. DUPIXENT [Suspect]
     Active Substance: DUPILUMAB
     Indication: Urticaria
     Dosage: 300 MG, QOW
     Dates: start: 20240325
  2. XOLAIR [Concomitant]
     Active Substance: OMALIZUMAB
     Indication: Urticaria
     Dosage: UNK

REACTIONS (2)
  - Off label use [Unknown]
  - Drug effective for unapproved indication [Unknown]

NARRATIVE: CASE EVENT DATE: 20240101
